FAERS Safety Report 8920969 (Version 1)
Quarter: 2012Q4

REPORT INFORMATION
  Report Type: 
  Country: FR (occurrence: FR)
  Receive Date: 20121122
  Receipt Date: 20121122
  Transmission Date: 20130627
  Serious: Yes (Hospitalization)
  Sender: FDA-Public Use
  Company Number: FR-BRISTOL-MYERS SQUIBB COMPANY-17132150

PATIENT
  Age: 74 Year
  Sex: Female

DRUGS (4)
  1. COUMADINE [Suspect]
     Dosage: long-term therapy
     Route: 048
  2. KARDEGIC [Suspect]
     Dosage: long-term therapy
     Route: 048
  3. VELCADE [Suspect]
     Dosage: 3rd course
     Dates: start: 20120718
  4. DEXAMETHASONE [Concomitant]
     Dosage: 3rd course

REACTIONS (3)
  - Renal failure acute [Recovering/Resolving]
  - Overdose [Unknown]
  - Haematuria [Recovered/Resolved]
